FAERS Safety Report 20429666 (Version 1)
Quarter: 2022Q1

REPORT INFORMATION
  Report Type: Report from Study
  Country: FR (occurrence: FR)
  Receive Date: 20220204
  Receipt Date: 20220204
  Transmission Date: 20220424
  Serious: Yes (Other)
  Sender: FDA-Public Use
  Company Number: FR-SERVIER-S19009155

PATIENT

DRUGS (7)
  1. PEGASPARGASE [Suspect]
     Active Substance: PEGASPARGASE
     Indication: Acute lymphocytic leukaemia
     Dosage: 3450 IU, ON D12
     Route: 042
     Dates: start: 20190706
  2. TN UNSPECIFIED [Concomitant]
     Indication: Acute lymphocytic leukaemia
     Dosage: 84 MG, D8 TO D28
     Route: 042
     Dates: start: 20190702, end: 20190722
  3. TN UNSPECIFIED [Concomitant]
     Indication: Acute lymphocytic leukaemia
     Dosage: 2 MG, ON D8, D15, D22 AND D29
     Route: 042
     Dates: start: 20190702, end: 20190723
  4. TN UNSPECIFIED [Concomitant]
     Indication: Acute lymphocytic leukaemia
     Dosage: 42 MG, D8, D15, D22 AND D29
     Route: 042
     Dates: start: 20190702, end: 20190722
  5. TN UNSPECIFIED [Concomitant]
     Indication: Acute lymphocytic leukaemia
     Dosage: 30 MG, ON D13 AND D24
     Route: 037
     Dates: start: 20190707, end: 20190718
  6. TN UNSPECIFIED [Concomitant]
     Indication: Acute lymphocytic leukaemia
     Dosage: 15 MG, ON D13 AND D24
     Route: 037
     Dates: start: 20190707, end: 20190718
  7. TN UNSPECIFIED [Concomitant]
     Indication: Acute lymphocytic leukaemia
     Dosage: 15 MG, D13 AND D24
     Route: 037
     Dates: start: 20190707, end: 20190718

REACTIONS (2)
  - Hypofibrinogenaemia [Recovered/Resolved]
  - Cholestasis [Recovered/Resolved]

NARRATIVE: CASE EVENT DATE: 20190719
